FAERS Safety Report 7761874-X (Version None)
Quarter: 2011Q3

REPORT INFORMATION
  Report Type: 
  Country: None (occurrence: None)
  Receive Date: 20110919
  Receipt Date: 20110919
  Transmission Date: 20111222
  Serious: Yes (Life-Threatening, Hospitalization)
  Sender: FDA-Public Use
  Company Number: None

PATIENT
  Age: 72 Year
  Sex: Male
  Weight: 97.7 kg

DRUGS (3)
  1. REMICADE [Suspect]
     Indication: ARTHRITIS
     Dosage: 550 MG 8/15 AND 9/14 INFUSION
     Route: 042
     Dates: start: 20100514, end: 20101001
  2. REMICADE [Suspect]
     Indication: ARTHRITIS
     Dosage: 550 MG 8/15 AND 9/14 INFUSION
     Route: 042
     Dates: start: 20110914
  3. REMICADE [Suspect]
     Indication: ARTHRITIS
     Dosage: 550 MG 8/15 AND 9/14 INFUSION
     Route: 042
     Dates: start: 20100815

REACTIONS (7)
  - PRURITUS [None]
  - BLOOD PRESSURE DECREASED [None]
  - CARDIAC ARREST [None]
  - PARALYSIS [None]
  - PULSE PRESSURE DECREASED [None]
  - RESPIRATORY ARREST [None]
  - UNRESPONSIVE TO STIMULI [None]
